FAERS Safety Report 14185379 (Version 1)
Quarter: 2017Q4

REPORT INFORMATION
  Report Type: Spontaneous
  Country: US (occurrence: US)
  Receive Date: 20171114
  Receipt Date: 20171114
  Transmission Date: 20180321
  Serious: No
  Sender: FDA-Public Use
  Company Number: US-TARO-2017TAR00336

PATIENT
  Age: 75 Year
  Sex: Male
  Weight: 77.98 kg

DRUGS (7)
  1. XARELTO [Concomitant]
     Active Substance: RIVAROXABAN
     Dosage: 20 MG, 1X/DAY
  2. ATORVASTATIN [Concomitant]
     Active Substance: ATORVASTATIN
     Dosage: 20 MG, 3X/WEEK; MONDAY, WEDNESDAY, FRIDAY
  3. FUROSEMIDE. [Concomitant]
     Active Substance: FUROSEMIDE
     Dosage: 40 MG, 3X/WEEK; MONDAY, WEDNESDAY, FRIDAY
  4. METOPROLOL SUCCINATE. [Concomitant]
     Active Substance: METOPROLOL SUCCINATE
     Dosage: 12.5 MG, 1X/DAY
  5. MUPIROCIN OINTMENT USP 2% [Suspect]
     Active Substance: MUPIROCIN
     Indication: RHINITIS
     Dosage: UNK UNK, 3X/DAY
     Route: 045
     Dates: start: 20170428, end: 20170428
  6. ^DOXYCYCLINE HYCLAP^ (HARRIS) [Concomitant]
     Indication: RHINITIS
     Dosage: UNK
     Dates: start: 20170428
  7. REVLIMID [Concomitant]
     Active Substance: LENALIDOMIDE
     Dosage: 5 MG, 3X/WEEK; MONDAY, WEDNESDAY, FRIDAY

REACTIONS (3)
  - Incorrect route of drug administration [Recovered/Resolved]
  - Hypoaesthesia oral [Recovering/Resolving]
  - Mouth swelling [Recovering/Resolving]

NARRATIVE: CASE EVENT DATE: 20170428
